FAERS Safety Report 4749686-2 (Version None)
Quarter: 2005Q3

REPORT INFORMATION
  Report Type: 
  Country: None (occurrence: None)
  Receive Date: 20050822
  Receipt Date: 20050811
  Transmission Date: 20060218
  Serious: Yes (Other)
  Sender: FDA-Public Use
  Company Number: US-ROCHE-414054

PATIENT
  Age: 46 Year
  Sex: Female
  Weight: 89.8 kg

DRUGS (12)
  1. CELLCEPT [Suspect]
     Dosage: 600MG WEEKLY.
     Route: 048
     Dates: start: 20030615
  2. FOSAMAX [Suspect]
     Indication: DRUG USE FOR UNKNOWN INDICATION
     Route: 048
  3. PREDNISONE [Suspect]
     Indication: DRUG USE FOR UNKNOWN INDICATION
     Route: 048
  4. LEXAPRO [Suspect]
     Indication: DRUG USE FOR UNKNOWN INDICATION
     Route: 048
  5. GEMFIBROZIL [Suspect]
     Indication: DRUG USE FOR UNKNOWN INDICATION
     Route: 048
  6. MORPHINE [Suspect]
     Indication: PAIN
     Route: 048
  7. TEMAZEPAM [Suspect]
     Indication: INSOMNIA
     Route: 048
  8. IMMUNOSUPPRESSANTS [Suspect]
     Indication: DRUG USE FOR UNKNOWN INDICATION
     Route: 048
  9. CALCIUM GLUCONATE [Concomitant]
     Route: 048
  10. MULTI-VITAMIN [Concomitant]
     Route: 048
  11. IBUPROFEN [Concomitant]
  12. ACETAMINOPHEN [Concomitant]

REACTIONS (4)
  - COLITIS [None]
  - GASTRIC ULCER [None]
  - GASTROOESOPHAGEAL REFLUX DISEASE [None]
  - OESOPHAGEAL ULCER [None]
